FAERS Safety Report 5643876-2 (Version None)
Quarter: 2008Q1

REPORT INFORMATION
  Report Type: 
  Country: None (occurrence: None)
  Receive Date: 20080226
  Receipt Date: 20080208
  Transmission Date: 20080703
  Serious: Yes (Death)
  Sender: FDA-Public Use
  Company Number: 08-185

PATIENT
  Sex: Female

DRUGS (1)
  1. FAZACLO ODT [Suspect]
     Dosage: 600 MG PO DAILY
     Route: 048
     Dates: start: 20051101, end: 20070601

REACTIONS (1)
  - CEREBROVASCULAR ACCIDENT [None]
